FAERS Safety Report 13763849 (Version 1)
Quarter: 2017Q3

REPORT INFORMATION
  Report Type: Spontaneous
  Country: US (occurrence: US)
  Receive Date: 20170718
  Receipt Date: 20170718
  Transmission Date: 20171127
  Serious: No
  Sender: FDA-Public Use
  Company Number: US-CELGENEUS-USA-20170702048

PATIENT
  Sex: Male
  Weight: 87.17 kg

DRUGS (1)
  1. REVLIMID [Suspect]
     Active Substance: LENALIDOMIDE
     Indication: PLASMA CELL MYELOMA
     Dosage: 5 MILLIGRAM
     Route: 048
     Dates: start: 20170514

REACTIONS (6)
  - Myalgia [Recovered/Resolved]
  - Ear discomfort [Recovering/Resolving]
  - Rhinorrhoea [Recovering/Resolving]
  - Pain in extremity [Recovered/Resolved]
  - Bone pain [Recovered/Resolved]
  - Insomnia [Recovered/Resolved]

NARRATIVE: CASE EVENT DATE: 2017
